FAERS Safety Report 9419100 (Version 2)
Quarter: 2013Q4

REPORT INFORMATION
  Report Type: Report from Study
  Country: FR (occurrence: FR)
  Receive Date: 20130725
  Receipt Date: 20131211
  Transmission Date: 20140711
  Serious: Yes (Death, Hospitalization, Other)
  Sender: FDA-Public Use
  Company Number: FR-ASTELLAS-2013US007751

PATIENT
  Age: 63 Year
  Sex: Male

DRUGS (6)
  1. ERLOTINIB TABLET [Suspect]
     Indication: LUNG NEOPLASM MALIGNANT
     Dosage: 150 MG, UID/QD
     Route: 048
     Dates: start: 20080920, end: 20120505
  2. OXYCONTIN [Concomitant]
     Indication: PAIN
     Dosage: 50 MG, UID/QD
     Route: 048
     Dates: end: 20120624
  3. LYRICA [Concomitant]
     Indication: PAIN
     Dosage: 150 MG, UID/QD
     Route: 048
     Dates: end: 20120624
  4. KARDEGIC [Concomitant]
     Indication: CARDIAC DISORDER
     Dosage: 75 MG, UID/QD
     Route: 048
     Dates: end: 20120624
  5. AMLOR [Concomitant]
     Indication: CARDIAC DISORDER
     Dosage: 10 MG, UID/QD
     Route: 048
     Dates: end: 20120624
  6. HYDROCORTISONE [Concomitant]
     Indication: ADRENAL INSUFFICIENCY
     Dosage: 10 MG, UID/QD
     Route: 048
     Dates: end: 20120624

REACTIONS (2)
  - Acute myeloid leukaemia [Unknown]
  - Pancytopenia [Fatal]
